FAERS Safety Report 14512776 (Version 1)
Quarter: 2018Q1

REPORT INFORMATION
  Report Type: Spontaneous
  Country: US (occurrence: US)
  Receive Date: 20180209
  Receipt Date: 20180209
  Transmission Date: 20180509
  Serious: No
  Sender: FDA-Public Use
  Company Number: US-ALLERGAN-1707552US

PATIENT
  Age: 60 Year
  Sex: Female

DRUGS (3)
  1. RESTASIS [Suspect]
     Active Substance: CYCLOSPORINE
     Indication: DRY EYE
     Dosage: 2 GTT, BID
     Route: 047
     Dates: start: 201701, end: 201704
  2. REFRESH PLUS [Concomitant]
     Active Substance: CARBOXYMETHYLCELLULOSE SODIUM
     Indication: DRY EYE
     Route: 047
  3. NEOMYCIN. [Concomitant]
     Active Substance: NEOMYCIN
     Indication: CHALAZION
     Dosage: ONCE OR TWICE DAILY

REACTIONS (9)
  - Eye pain [Recovered/Resolved]
  - Eye irritation [Recovering/Resolving]
  - Product use issue [Unknown]
  - Product packaging issue [Unknown]
  - Erythema of eyelid [Unknown]
  - Eye pruritus [Unknown]
  - Vision blurred [Recovering/Resolving]
  - Eye discharge [Unknown]
  - Superficial injury of eye [Unknown]

NARRATIVE: CASE EVENT DATE: 201701
